FAERS Safety Report 9894144 (Version 3)
Quarter: 2014Q2

REPORT INFORMATION
  Report Type: Spontaneous
  Country: US (occurrence: US)
  Receive Date: 20140213
  Receipt Date: 20140521
  Transmission Date: 20141212
  Serious: Yes (Life-Threatening, Hospitalization, Other)
  Sender: FDA-Public Use
  Company Number: US-PFIZER INC-2014039692

PATIENT
  Age: 52 Year
  Sex: Male
  Weight: 89.3 kg

DRUGS (10)
  1. SUTENT [Suspect]
     Indication: METASTATIC RENAL CELL CARCINOMA
     Dosage: 50 MG, DAILY CYCLIC
     Route: 048
     Dates: start: 20131227, end: 20140130
  2. ARIXTRA [Suspect]
     Indication: PULMONARY EMBOLISM
     Dosage: 7.5 MG, DAILY
     Route: 058
     Dates: start: 20140130, end: 20140131
  3. COUMADINE [Suspect]
     Indication: PULMONARY EMBOLISM
     Dosage: UNK
     Route: 048
     Dates: end: 20140130
  4. ACIPHEX [Suspect]
     Dosage: BID
  5. PAXIL [Concomitant]
     Indication: DEPRESSION
  6. LISINOPRIL [Concomitant]
     Dosage: UNK
  7. NORCO [Concomitant]
     Dosage: UNK
  8. COLACE [Concomitant]
     Dosage: UNK
  9. MS CONTIN [Concomitant]
     Dosage: UNK
  10. NICODERM [Concomitant]
     Dosage: UNK

REACTIONS (26)
  - Haemoptysis [Recovered/Resolved]
  - Gastrointestinal haemorrhage [Unknown]
  - Haemorrhage [Unknown]
  - Haematemesis [Recovered/Resolved]
  - Anaemia [Unknown]
  - Hypertension [Unknown]
  - Abdominal pain [Unknown]
  - Dizziness [Unknown]
  - Fatigue [Unknown]
  - Asthenia [Unknown]
  - Anxiety [Unknown]
  - Tachycardia [Unknown]
  - Wheezing [Unknown]
  - Gastrointestinal sounds abnormal [Unknown]
  - Disease progression [Unknown]
  - Metastatic renal cell carcinoma [Unknown]
  - Lymphadenopathy [Unknown]
  - Abdominal tenderness [Unknown]
  - Depression [Unknown]
  - Vomiting [Unknown]
  - Coagulopathy [Unknown]
  - Lung hyperinflation [Unknown]
  - Lung infiltration [Unknown]
  - Calculus ureteric [Unknown]
  - Haemoglobin decreased [Unknown]
  - International normalised ratio increased [Unknown]
